FAERS Safety Report 5961966-1 (Version None)
Quarter: 2008Q4

REPORT INFORMATION
  Report Type: 
  Country: None (occurrence: None)
  Receive Date: 20081121
  Receipt Date: 20081112
  Transmission Date: 20090506
  Serious: Yes (Hospitalization)
  Sender: FDA-Public Use
  Company Number: JP-ASTRAZENECA-2008AP02187

PATIENT
  Age: 3 Year
  Sex: Male
  Weight: 16 kg

DRUGS (24)
  1. PULMICORT RESPULES [Suspect]
     Indication: ASTHMA
     Route: 055
     Dates: start: 20070914, end: 20080601
  2. PULMICORT RESPULES [Suspect]
     Route: 055
     Dates: start: 20080902
  3. INTAL [Concomitant]
     Indication: ASTHMA
     Dosage: NUMBER OF SEPARATE DOSAGES UNKNOWN
     Route: 055
     Dates: end: 20070915
  4. INTAL [Concomitant]
     Dosage: NUMBER OF SEPARATE DOSAGES UNKNOWN
     Route: 055
     Dates: start: 20080128, end: 20080202
  5. INTAL [Concomitant]
     Dosage: NUMBER OF SEPARATE DOSAGES UNKNOWN
     Route: 055
     Dates: start: 20080602, end: 20080901
  6. MEPTIN [Concomitant]
     Indication: ASTHMA
     Dosage: NUMBER OF SEPARATE DOSAGES UNKNOWN
     Route: 055
     Dates: end: 20070915
  7. MEPTIN [Concomitant]
     Dosage: NUMBER OF SEPARATE DOSAGES UNKNOWN
     Route: 048
     Dates: start: 20070916, end: 20070918
  8. MEPTIN [Concomitant]
     Dosage: NUMBER OF SEPARATE DOSAGES UNKNOWN
     Route: 055
     Dates: start: 20080128, end: 20080202
  9. MEPTIN [Concomitant]
     Dosage: NUMBER OF SEPARATE DOSAGES UNKNOWN
     Route: 048
     Dates: start: 20080408, end: 20080423
  10. ONON DRYSYRUP [Concomitant]
     Indication: ASTHMA
     Dosage: NUMBER OF SEPARATE DOSAGES UNKNOWN
     Route: 048
     Dates: end: 20070915
  11. ONON DRYSYRUP [Concomitant]
     Dosage: NUMBER OF SEPARATE DOSAGES UNKNOWN
     Route: 048
     Dates: start: 20080128, end: 20080202
  12. ASVERIN [Concomitant]
     Indication: ASTHMA
     Dosage: NUMBER OF SEPARATE DOSAGES UNKNOWN
     Route: 048
     Dates: start: 20070916, end: 20070918
  13. ASVERIN [Concomitant]
     Dosage: NUMBER OF SEPARATE DOSAGES UNKNOWN
     Route: 048
     Dates: start: 20080912, end: 20080923
  14. ASVERIN [Concomitant]
     Dosage: NUMBER OF SEPARATE DOSAGES UNKNOWN
     Route: 048
     Dates: start: 20081006
  15. MUCODYNE [Concomitant]
     Indication: ASTHMA
     Dosage: NUMBER OF SEPARATE DOSAGES UNKNOWN
     Route: 048
     Dates: start: 20070916, end: 20070918
  16. MUCODYNE [Concomitant]
     Dosage: NUMBER OF SEPARATE DOSAGES UNKNOWN
     Route: 048
     Dates: start: 20080128, end: 20080205
  17. MUCOSOLVAN:SYRUP [Concomitant]
     Indication: ASTHMA
     Dosage: NUMBER OF SEPARATE DOSAGES UNKNOWN
     Route: 048
     Dates: start: 20070916, end: 20070918
  18. ALIMEZINE [Concomitant]
     Indication: ASTHMA
     Dosage: NUMBER OF SEPARATE DOSAGES UNKNOWN
     Route: 048
     Dates: start: 20070916, end: 20070918
  19. ALIMEZINE [Concomitant]
     Dosage: NUMBER OF SEPARATE DOSAGES UNKNOWN
     Route: 048
     Dates: start: 20080128, end: 20080205
  20. MEDICON [Concomitant]
     Indication: ASTHMA
     Dates: start: 20080602, end: 20080612
  21. MUCOSAL [Concomitant]
     Dates: start: 20080602, end: 20080612
  22. MUCOSAL [Concomitant]
     Dates: start: 20080912, end: 20080923
  23. MUCOSAL [Concomitant]
     Dates: start: 20081006
  24. TELGIN [Concomitant]
     Dates: start: 20080602, end: 20080612

REACTIONS (2)
  - PNEUMONIA [None]
  - PNEUMONIA MYCOPLASMAL [None]
